FAERS Safety Report 8319772-9 (Version None)
Quarter: 2012Q2

REPORT INFORMATION
  Report Type: 
  Country: None (occurrence: None)
  Receive Date: 20120427
  Receipt Date: 20120418
  Transmission Date: 20120825
  Serious: Yes (Hospitalization, Other)
  Sender: FDA-Public Use
  Company Number: CA-CELGENEUS-028-50794-12042075

PATIENT
  Age: 38 Year
  Sex: Female

DRUGS (2)
  1. VIDAZA [Suspect]
     Route: 058
  2. VORINOSTAT [Concomitant]
     Route: 065

REACTIONS (5)
  - PANCYTOPENIA [None]
  - INCORRECT ROUTE OF DRUG ADMINISTRATION [None]
  - COMPARTMENT SYNDROME [None]
  - INJECTION SITE MOVEMENT IMPAIRMENT [None]
  - INJECTION SITE NODULE [None]
